FAERS Safety Report 13313400 (Version 1)
Quarter: 2017Q1

REPORT INFORMATION
  Report Type: Spontaneous
  Country: US (occurrence: US)
  Receive Date: 20170309
  Receipt Date: 20170309
  Transmission Date: 20170428
  Serious: Yes (Death, Hospitalization, Other)
  Sender: FDA-Public Use
  Company Number: US-IMPAX LABORATORIES, INC-2017-IPXL-00530

PATIENT
  Age: 78 Year
  Sex: Male

DRUGS (6)
  1. CARBIDOPA-LEVODOPA ER [Suspect]
     Active Substance: CARBIDOPA\LEVODOPA
     Indication: PARKINSON^S DISEASE
     Dosage: UNK
     Route: 065
  2. AMANTADINE [Suspect]
     Active Substance: AMANTADINE
     Dosage: UNK; DOSE INCREASED
  3. AMANTADINE [Suspect]
     Active Substance: AMANTADINE
     Indication: PARKINSON^S DISEASE
     Dosage: UNK
     Route: 065
  4. CARBIDOPA-LEVODOPA ER [Suspect]
     Active Substance: CARBIDOPA\LEVODOPA
     Dosage: UNK; DOSE INCREASED
  5. RASAGILINE [Suspect]
     Active Substance: RASAGILINE
     Indication: PARKINSON^S DISEASE
     Dosage: UNK
     Route: 065
  6. RASAGILINE [Suspect]
     Active Substance: RASAGILINE
     Dosage: UNK; DOSE INCREASED

REACTIONS (11)
  - Delusion of replacement [Recovering/Resolving]
  - Sleep disorder [Unknown]
  - Executive dysfunction [Unknown]
  - Paranoia [Unknown]
  - Hallucination, visual [Recovering/Resolving]
  - Cognitive disorder [Unknown]
  - Tremor [Unknown]
  - Arrhythmia [Fatal]
  - Depression [Recovering/Resolving]
  - Deep brain stimulation [Unknown]
  - Cerebrovascular disorder [Unknown]
